FAERS Safety Report 5528299-9 (Version None)
Quarter: 2007Q4

REPORT INFORMATION
  Report Type: 
  Country: None (occurrence: None)
  Receive Date: 20071109
  Receipt Date: 20070226
  Transmission Date: 20080405
  Serious: Yes (Other)
  Sender: FDA-Public Use
  Company Number: PHEH2007US02505

PATIENT
  Age: 50 Year
  Sex: Female
  Weight: 78 kg

DRUGS (7)
  1. ESTRADERM [Suspect]
     Indication: HORMONE REPLACEMENT THERAPY
     Dosage: 0.1 MG/DAY, TRANSDERMAL
     Route: 062
  2. PREMPRO [Suspect]
     Indication: HORMONE REPLACEMENT THERAPY
     Dosage: ORAL
     Route: 048
     Dates: start: 19870101, end: 19990101
  3. PROVERA [Suspect]
     Indication: HORMONE REPLACEMENT THERAPY
     Dosage: 1 MG, QD, ORAL
     Route: 048
     Dates: start: 19870101, end: 19990101
  4. PREMARIN [Suspect]
     Indication: HORMONE REPLACEMENT THERAPY
     Dosage: 1.25 MG, ORAL ; 0.625 MG, ORAL
     Route: 048
     Dates: end: 19990101
  5. PREMARIN [Suspect]
     Indication: HORMONE REPLACEMENT THERAPY
     Dosage: 1.25 MG, ORAL ; 0.625 MG, ORAL
     Route: 048
     Dates: start: 19870101
  6. TESTOSTERONE [Suspect]
     Indication: HORMONE REPLACEMENT THERAPY
     Dates: start: 19870101, end: 19990101
  7. LIBRAX (CHLORDIAZEPOXIDE, CLIDINIUM BROMIDE) [Concomitant]

REACTIONS (34)
  - ALOPECIA [None]
  - ANXIETY [None]
  - ASTHENIA [None]
  - BIOPSY BREAST [None]
  - BODY DYSMORPHIC DISORDER [None]
  - BREAST CANCER [None]
  - BURSITIS [None]
  - DEPRESSION [None]
  - DISCOMFORT [None]
  - EXOSTOSIS [None]
  - FEAR [None]
  - HOT FLUSH [None]
  - HYPOAESTHESIA [None]
  - INTERVERTEBRAL DISC DEGENERATION [None]
  - INTERVERTEBRAL DISC PROTRUSION [None]
  - IRRITABILITY [None]
  - LYMPHADENECTOMY [None]
  - MALIGNANT BREAST LUMP REMOVAL [None]
  - MAMMOGRAM ABNORMAL [None]
  - METASTASES TO BONE [None]
  - METASTASES TO LYMPH NODES [None]
  - MUSCULOSKELETAL PAIN [None]
  - NAUSEA [None]
  - NECK PAIN [None]
  - NUCLEAR MAGNETIC RESONANCE IMAGING ABNORMAL [None]
  - OESTROGEN RECEPTOR ASSAY POSITIVE [None]
  - PAIN [None]
  - PARAESTHESIA [None]
  - POSITRON EMISSION TOMOGRAM ABNORMAL [None]
  - PROGESTERONE RECEPTOR ASSAY POSITIVE [None]
  - SPINAL OSTEOARTHRITIS [None]
  - SWELLING [None]
  - TENDON DISORDER [None]
  - ULTRASOUND BREAST ABNORMAL [None]
